FAERS Safety Report 8981433 (Version 1)
Quarter: 2012Q4

REPORT INFORMATION
  Report Type: 
  Country: US (occurrence: US)
  Receive Date: 20121221
  Receipt Date: 20121221
  Transmission Date: 20130627
  Serious: Yes (Other)
  Sender: FDA-Public Use
  Company Number: US-COVIDIEN/TYCO HEALTHCARE/MALLINCKRODT-T201204336

PATIENT
  Sex: Male

DRUGS (2)
  1. FENTANYL CITRATE [Suspect]
     Indication: PAIN
     Dosage: 2-3 per day, prn
  2. OXYCODONE [Concomitant]
     Dosage: UNK

REACTIONS (5)
  - Cerebrovascular accident [Unknown]
  - Liver disorder [Unknown]
  - Fall [Unknown]
  - Herpes zoster [Unknown]
  - Tooth loss [Unknown]
